FAERS Safety Report 15746430 (Version 1)
Quarter: 2018Q4

REPORT INFORMATION
  Report Type: Report from Study
  Country: US (occurrence: US)
  Receive Date: 20181220
  Receipt Date: 20181220
  Transmission Date: 20190205
  Serious: Yes (Hospitalization)
  Sender: FDA-Public Use
  Company Number: US-JNJFOC-20181221251

PATIENT
  Sex: Female

DRUGS (7)
  1. IMBRUVICA [Suspect]
     Active Substance: IBRUTINIB
     Indication: NON-HODGKIN^S LYMPHOMA
     Route: 048
     Dates: start: 20180511
  2. MULTIVITAMINS [Concomitant]
     Active Substance: VITAMINS
  3. QUINAPRIL. [Concomitant]
     Active Substance: QUINAPRIL
  4. ASPIRIN. [Concomitant]
     Active Substance: ASPIRIN
  5. FISH OIL [Concomitant]
     Active Substance: FISH OIL
  6. CALCIUM CARBONATE. [Concomitant]
     Active Substance: CALCIUM CARBONATE
  7. IMBRUVICA [Suspect]
     Active Substance: IBRUTINIB
     Indication: NON-HODGKIN^S LYMPHOMA
     Route: 048
     Dates: start: 20170414, end: 20180510

REACTIONS (7)
  - Asthenia [Recovering/Resolving]
  - Hypertension [Unknown]
  - Post procedural swelling [Unknown]
  - Muscle spasms [Unknown]
  - Head injury [Unknown]
  - Fall [Unknown]
  - Haemorrhage [Unknown]
